FAERS Safety Report 23261894 (Version 3)
Quarter: 2024Q1

REPORT INFORMATION
  Report Type: Spontaneous
  Country: US (occurrence: US)
  Receive Date: 20231205
  Receipt Date: 20240120
  Transmission Date: 20240410
  Serious: Yes (Hospitalization, Other)
  Sender: FDA-Public Use
  Company Number: US-UCBSA-2023057229

PATIENT
  Sex: Female
  Weight: 113.38 kg

DRUGS (1)
  1. CIMZIA [Suspect]
     Active Substance: CERTOLIZUMAB PEGOL
     Indication: Rheumatoid arthritis
     Dosage: 400 MILLIGRAM, EV 4 WEEKS
     Route: 058
     Dates: start: 201809

REACTIONS (4)
  - Thrombosis [Unknown]
  - Breast mass [Unknown]
  - Mass excision [Unknown]
  - Inappropriate schedule of product administration [Unknown]
